FAERS Safety Report 14419474 (Version 1)
Quarter: 2018Q1

REPORT INFORMATION
  Report Type: Spontaneous
  Country: US (occurrence: US)
  Receive Date: 20180121
  Receipt Date: 20180121
  Transmission Date: 20180509
  Serious: Yes (Disabling)
  Sender: FDA-Public Use
  Company Number: None

PATIENT
  Sex: Male
  Weight: 80.1 kg

DRUGS (2)
  1. ZOLOFT [Concomitant]
     Active Substance: SERTRALINE HYDROCHLORIDE
  2. PROPECIA [Suspect]
     Active Substance: FINASTERIDE
     Indication: ANDROGENETIC ALOPECIA
     Dosage: ?          QUANTITY:1 TABLET(S);?
     Route: 048
     Dates: start: 20170311, end: 20171020

REACTIONS (9)
  - Erectile dysfunction [None]
  - Penis disorder [None]
  - Feeling abnormal [None]
  - Emotional disorder [None]
  - Anhedonia [None]
  - Asthenia [None]
  - Depression [None]
  - Headache [None]
  - Libido decreased [None]

NARRATIVE: CASE EVENT DATE: 20171020
